FAERS Safety Report 4819544-3 (Version None)
Quarter: 2005Q4

REPORT INFORMATION
  Report Type: 
  Country: None (occurrence: None)
  Receive Date: 20051102
  Receipt Date: 20051102
  Transmission Date: 20060501
  Serious: Yes (Other)
  Sender: FDA-Public Use
  Company Number: None

PATIENT
  Age: 48 Year
  Sex: Female
  Weight: 67.1324 kg

DRUGS (1)
  1. CAMILA [Suspect]
     Indication: CONTRACEPTION
     Dosage: ONE PO DAILY
     Route: 048
     Dates: start: 20051014, end: 20051025

REACTIONS (1)
  - RASH ERYTHEMATOUS [None]
